FAERS Safety Report 4707950-7 (Version None)
Quarter: 2005Q2

REPORT INFORMATION
  Report Type: 
  Country: None (occurrence: None)
  Receive Date: 20050629
  Receipt Date: 20050321
  Transmission Date: 20051028
  Serious: No
  Sender: FDA-Public Use
  Company Number: 05P-163-0294710-00

PATIENT
  Age: 61 Year
  Sex: Female
  Weight: 85.2762 kg

DRUGS (15)
  1. HUMIRA [Suspect]
     Indication: RHEUMATOID ARTHRITIS
     Dosage: 40 MG, 1 IN 2 WK, SUBCUTANEOUS
     Route: 058
     Dates: start: 20030505
  2. SULFADIAZINE [Concomitant]
  3. METHOTREXATE SODIUM [Concomitant]
  4. HYDROXYCHLOROQUINE PHOSPHATE [Concomitant]
  5. FOLIC ACID [Concomitant]
  6. PREDNISONE TAB [Concomitant]
  7. HYDROCHLOROTHIAZIDE [Concomitant]
  8. SALBUTAMOL [Concomitant]
  9. SERETIDE MITE [Concomitant]
  10. TRAMADOL HCL [Concomitant]
  11. ACETAMINOPHEN [Concomitant]
  12. DICLOFENAC SODIUM [Concomitant]
  13. MELRIAL [Concomitant]
  14. LITHIUM CARBONATE [Concomitant]
  15. LANSOPRAZOLE [Concomitant]

REACTIONS (3)
  - FALL [None]
  - HYPERTENSION [None]
  - SKIN LACERATION [None]
